FAERS Safety Report 5379485-2 (Version None)
Quarter: 2007Q3

REPORT INFORMATION
  Report Type: 
  Country: None (occurrence: None)
  Receive Date: 20070703
  Receipt Date: 20070627
  Transmission Date: 20080115
  Serious: Yes (Disabling)
  Sender: FDA-Public Use
  Company Number: SP01273

PATIENT
  Age: 50 Year
  Sex: Female

DRUGS (2)
  1. COLAZAL (750 MILIGRAM,  CAPSULES) [Suspect]
     Indication: COLITIS ULCERATIVE
     Dosage: 6750 MG (2250 MG, 3 IN 1 D), ORAL
     Route: 048
     Dates: start: 20031001
  2. FOSAMAX (70 MILLIGRAM) [Concomitant]

REACTIONS (3)
  - COLITIS ULCERATIVE [None]
  - CONDITION AGGRAVATED [None]
  - PHARMACEUTICAL PRODUCT COMPLAINT [None]
